FAERS Safety Report 10410047 (Version 2)
Quarter: 2014Q3

REPORT INFORMATION
  Report Type: Spontaneous
  Country: GB (occurrence: GB)
  Receive Date: 20140826
  Receipt Date: 20140826
  Transmission Date: 20150326
  Serious: Yes (Other)
  Sender: FDA-Public Use
  Company Number: GB-GE HEALTHCARE MEDICAL DIAGNOSTICS-2915056-2014-00011

PATIENT

DRUGS (1)
  1. IODINE (I-125) SEEDS [Suspect]
     Active Substance: IODINE I-125

REACTIONS (3)
  - No adverse event [Recovered/Resolved]
  - Device malfunction [Recovered/Resolved]
  - Drug dispensing error [None]
